FAERS Safety Report 4650360-1 (Version None)
Quarter: 2005Q2

REPORT INFORMATION
  Report Type: 
  Country: None (occurrence: None)
  Receive Date: 20050429
  Receipt Date: 20050418
  Transmission Date: 20051028
  Serious: Yes (Hospitalization)
  Sender: FDA-Public Use
  Company Number: 2005SE01343

PATIENT
  Age: 74 Year
  Sex: Male

DRUGS (5)
  1. CASODEX [Suspect]
     Indication: PROSTATE CANCER
     Dosage: 150 MG DAILY PO
     Route: 048
     Dates: start: 20040818, end: 20050206
  2. HJERTEMAGNYL ^DAK^ [Concomitant]
  3. PRIMPERAN TAB [Concomitant]
  4. SULFAMETIZOL [Concomitant]
  5. PONDOCILLIN [Concomitant]

REACTIONS (16)
  - ALANINE AMINOTRANSFERASE INCREASED [None]
  - BLOOD ALKALINE PHOSPHATASE INCREASED [None]
  - BLOOD PRESSURE SYSTOLIC INCREASED [None]
  - BONE DISORDER [None]
  - CHILLS [None]
  - CYSTITIS [None]
  - DECREASED APPETITE [None]
  - DIARRHOEA [None]
  - FATIGUE [None]
  - JAUNDICE [None]
  - LIVER DISORDER [None]
  - NAUSEA [None]
  - ORAL DISCOMFORT [None]
  - ORCHIDECTOMY [None]
  - PROSTATIC SPECIFIC ANTIGEN INCREASED [None]
  - PRURITUS [None]
